FAERS Safety Report 13624021 (Version 2)
Quarter: 2017Q2

REPORT INFORMATION
  Report Type: Report from Study
  Country: None (occurrence: CH)
  Receive Date: 20170608
  Receipt Date: 20170608
  Transmission Date: 20170830
  Serious: Yes (Hospitalization)
  Sender: FDA-Public Use
  Company Number: CH-ABBVIE-17K-151-2000035-00

PATIENT
  Sex: Female

DRUGS (1)
  1. DUODOPA [Suspect]
     Active Substance: CARBIDOPA\LEVODOPA
     Indication: PARKINSON^S DISEASE
     Dosage: MORNING DOES 3.0ML, CONTINUOUS RATE DAY 1.5ML/H, EXTRA DOSE 0.5ML?16H THERAPY
     Route: 050
     Dates: start: 20090629

REACTIONS (4)
  - General physical health deterioration [Recovering/Resolving]
  - Stoma site erythema [Unknown]
  - Device issue [Unknown]
  - Malaise [Unknown]
